FAERS Safety Report 7916774-9 (Version None)
Quarter: 2011Q4

REPORT INFORMATION
  Report Type: 
  Country: None (occurrence: None)
  Receive Date: 20111116
  Receipt Date: 20111114
  Transmission Date: 20120403
  Serious: Yes (Hospitalization)
  Sender: FDA-Public Use
  Company Number: US-ELI_LILLY_AND_COMPANY-US201111002151

PATIENT
  Sex: Female

DRUGS (7)
  1. HUMALOG [Suspect]
     Dosage: UNK, PRN
     Dates: start: 20060101
  2. HUMULIN 70/30 [Suspect]
     Indication: TYPE 2 DIABETES MELLITUS
  3. LANTUS [Concomitant]
  4. HUMULIN R [Suspect]
     Indication: TYPE 2 DIABETES MELLITUS
  5. HUMALOG [Suspect]
     Dosage: UNK, PRN
     Dates: start: 20060101
  6. HUMALOG [Suspect]
     Indication: TYPE 2 DIABETES MELLITUS
     Dosage: UNK, PRN
     Dates: start: 20060101
  7. HUMULIN N [Suspect]
     Indication: TYPE 2 DIABETES MELLITUS

REACTIONS (4)
  - CHEST PAIN [None]
  - BLOOD GLUCOSE INCREASED [None]
  - BLOOD GLUCOSE DECREASED [None]
  - STENT PLACEMENT [None]
